FAERS Safety Report 7712592-5 (Version None)
Quarter: 2011Q3

REPORT INFORMATION
  Report Type: 
  Country: None (occurrence: None)
  Receive Date: 20110826
  Receipt Date: 20110815
  Transmission Date: 20111222
  Serious: Yes (Other)
  Sender: FDA-Public Use
  Company Number: US-JNJFOC-20110809875

PATIENT
  Age: 47 Year
  Sex: Female
  Weight: 64.41 kg

DRUGS (2)
  1. BENADRYL [Suspect]
     Route: 048
  2. BENADRYL [Suspect]
     Indication: MULTIPLE ALLERGIES
     Dosage: 1 GELCAP
     Route: 048
     Dates: start: 19961101, end: 19961101

REACTIONS (1)
  - HEART RATE DECREASED [None]
